FAERS Safety Report 19279539 (Version 1)
Quarter: 2021Q2

REPORT INFORMATION
  Report Type: Spontaneous
  Country: CN (occurrence: CN)
  Receive Date: 20210520
  Receipt Date: 20210520
  Transmission Date: 20210717
  Serious: Yes (Other)
  Sender: FDA-Public Use
  Company Number: CN-ELI_LILLY_AND_COMPANY-CN202105007742

PATIENT
  Age: 62 Year
  Sex: Male
  Weight: 63 kg

DRUGS (5)
  1. CISPLATIN. [Suspect]
     Active Substance: CISPLATIN
     Indication: LUNG NEOPLASM MALIGNANT
     Dosage: 40 MG, DAILY
     Route: 041
     Dates: start: 20210421, end: 20210423
  2. SODIUM CHLORIDE. [Concomitant]
     Active Substance: SODIUM CHLORIDE
     Indication: LUNG NEOPLASM MALIGNANT
     Dosage: 100 ML, DAILY
     Route: 041
     Dates: start: 20210421, end: 20210421
  3. SODIUM CHLORIDE. [Concomitant]
     Active Substance: SODIUM CHLORIDE
     Dosage: 250 ML, DAILY
     Route: 041
     Dates: start: 20210421, end: 20210423
  4. PEMETREXED. [Suspect]
     Active Substance: PEMETREXED
     Indication: LUNG NEOPLASM MALIGNANT
     Dosage: 0.5 G, DAILY
     Route: 041
     Dates: start: 20210421, end: 20210421
  5. PEMETREXED. [Suspect]
     Active Substance: PEMETREXED
     Dosage: 0.3 G, DAILY
     Route: 041
     Dates: start: 20210421, end: 20210421

REACTIONS (2)
  - Blood sodium decreased [Recovering/Resolving]
  - Blood chloride decreased [Recovering/Resolving]

NARRATIVE: CASE EVENT DATE: 20210424
